FAERS Safety Report 6469756-0 (Version None)
Quarter: 2009Q4

REPORT INFORMATION
  Report Type: 
  Country: None (occurrence: None)
  Receive Date: 20091203
  Receipt Date: 20071130
  Transmission Date: 20100525
  Serious: Yes (Other)
  Sender: FDA-Public Use
  Company Number: US-ELI_LILLY_AND_COMPANY-US200701001359

PATIENT
  Age: 38 Year
  Sex: Female
  Weight: 72.562 kg

DRUGS (6)
  1. CYMBALTA [Suspect]
     Indication: NEUROPATHY PERIPHERAL
     Dosage: 30 MG, DAILY (1/D)
     Dates: start: 20061120, end: 20061205
  2. CYMBALTA [Suspect]
     Dosage: 60 MG, DAILY (1/D)
     Dates: start: 20061206, end: 20061221
  3. DYAZIDE                                 /CAN/ [Concomitant]
     Dosage: 37.5 MG, UNK
  4. LEVOTHYROXINE SODIUM [Concomitant]
     Dosage: 112 UG, DAILY (1/D)
  5. LASIX [Concomitant]
  6. ALDACTONE [Concomitant]

REACTIONS (13)
  - ABDOMINAL DISTENSION [None]
  - AUTOIMMUNE THYROIDITIS [None]
  - BLOOD ALDOSTERONE INCREASED [None]
  - CONSTIPATION [None]
  - CRYING [None]
  - DEPRESSION [None]
  - DYSPNOEA [None]
  - DYSURIA [None]
  - FLATULENCE [None]
  - GENERALISED OEDEMA [None]
  - LETHARGY [None]
  - LOSS OF LIBIDO [None]
  - WEIGHT INCREASED [None]
